FAERS Safety Report 17287203 (Version 2)
Quarter: 2020Q1

REPORT INFORMATION
  Report Type: Report from Study
  Country: JP (occurrence: JP)
  Receive Date: 20200120
  Receipt Date: 20200122
  Transmission Date: 20200409
  Serious: Yes (Hospitalization)
  Sender: FDA-Public Use
  Company Number: JP-BAYER-2011-121763

PATIENT
  Age: 68 Year
  Sex: Male
  Weight: 57 kg

DRUGS (39)
  1. RIOCIGUAT (GUANYLATE CYCLASE STIMULATOR) [Suspect]
     Active Substance: RIOCIGUAT
     Indication: PULMONARY HYPERTENSION
     Dosage: EXTENSION PHASE
     Route: 048
     Dates: end: 20111221
  2. RIOCIGUAT (GUANYLATE CYCLASE STIMULATOR) [Suspect]
     Active Substance: RIOCIGUAT
     Indication: PULMONARY HYPERTENSION
     Dosage: TITRATION 0.5 - 1.0 - 2.0 MG
     Route: 048
     Dates: start: 20110822, end: 20110904
  3. RIOCIGUAT (GUANYLATE CYCLASE STIMULATOR) [Suspect]
     Active Substance: RIOCIGUAT
     Indication: PULMONARY HYPERTENSION
     Dosage: TITRATION 0.5 - 1.0 - 2.0 MG
     Route: 048
     Dates: start: 20110905, end: 20110915
  4. LASIX [Suspect]
     Active Substance: FUROSEMIDE
     Indication: CARDIAC FAILURE
     Dosage: 20 MG, QD
     Route: 048
     Dates: start: 20111111, end: 20111220
  5. BAYASPIRIN 100 MG [Concomitant]
     Active Substance: ASPIRIN
     Dosage: 100 MG, QD
     Route: 048
     Dates: start: 20010618
  6. LOCHOL [Concomitant]
     Active Substance: FLUVASTATIN SODIUM
     Indication: HYPERLIPIDAEMIA
     Dosage: 10 MG, QD
     Route: 048
     Dates: start: 20090207, end: 20111215
  7. GLUCOSE [Concomitant]
     Active Substance: DEXTROSE
     Indication: CATHETERISATION CARDIAC
     Dosage: 500 ML, QD INTRAVENOUS DRIP
     Route: 042
     Dates: start: 20110819, end: 20110819
  8. TANATRIL [Concomitant]
     Active Substance: IMIDAPRIL
     Indication: CARDIAC FAILURE
     Dosage: 1.25 MG, QD
     Route: 048
     Dates: start: 20120105
  9. ATARAX-P [HYDROXYZINE HYDROCHLORIDE] [Concomitant]
     Indication: CATHETERISATION CARDIAC
     Dosage: 25 MG, QD
     Route: 030
     Dates: start: 20110819, end: 20110819
  10. MS REISHIPPU [Concomitant]
     Active Substance: CAMPHOR\MENTHOL\METHYL SALICYLATE
     Indication: BONE PAIN
     Dosage: UNK
     Route: 062
     Dates: start: 20111212, end: 20111214
  11. LOCHOL [Concomitant]
     Active Substance: FLUVASTATIN SODIUM
     Indication: HYPERLIPIDAEMIA
     Dosage: 10 MG, QD
     Route: 048
     Dates: start: 20120105
  12. WARFARIN [Concomitant]
     Active Substance: WARFARIN
     Indication: CARDIAC FAILURE
     Dosage: 1 MG, QD
     Route: 048
     Dates: start: 20090820
  13. ZYLORIC [Concomitant]
     Active Substance: ALLOPURINOL
     Indication: HYPERURICAEMIA
     Dosage: 100 MG, QD
     Route: 048
     Dates: start: 20120105
  14. MAGNESIUM OXIDE. [Concomitant]
     Active Substance: MAGNESIUM OXIDE
     Indication: CONSTIPATION
     Dosage: 0.5 G, TID
     Route: 048
     Dates: start: 20120105
  15. FRANDOL [Concomitant]
     Active Substance: ISOSORBIDE DINITRATE
     Indication: CARDIAC FAILURE
     Dosage: 40 MG, QD
     Route: 003
     Dates: start: 20090730, end: 20110811
  16. UNASYN [Concomitant]
     Active Substance: AMPICILLIN SODIUM\SULBACTAM SODIUM
     Indication: CATHETERISATION CARDIAC
     Dosage: 100 ML, QD INTRAVENOUS DRIP
     Route: 042
     Dates: start: 20111213, end: 20111213
  17. ANCARON [Suspect]
     Active Substance: AMIODARONE HYDROCHLORIDE
     Indication: ARRHYTHMIA
     Dosage: 100 MG, QD
     Route: 048
     Dates: start: 20090209
  18. LASIX [Suspect]
     Active Substance: FUROSEMIDE
     Indication: CARDIAC FAILURE
     Dosage: 40 MG, QD
     Route: 048
     Dates: start: 20101228, end: 20111111
  19. ALDACTONE A [Suspect]
     Active Substance: SPIRONOLACTONE
     Indication: HYPOKALAEMIA
     Dosage: 25 MG, QD
     Route: 048
     Dates: start: 20111014, end: 20111215
  20. MAGNESIUM OXIDE. [Concomitant]
     Active Substance: MAGNESIUM OXIDE
     Indication: CONSTIPATION
     Dosage: 0.5 G, TID
     Route: 048
     Dates: start: 20120105
  21. SINGULAIR [Concomitant]
     Active Substance: MONTELUKAST SODIUM
     Indication: NASOPHARYNGITIS
     Dosage: 20 MG, QD
     Route: 048
     Dates: start: 20111020, end: 20111025
  22. RIOCIGUAT (GUANYLATE CYCLASE STIMULATOR) [Suspect]
     Active Substance: RIOCIGUAT
     Indication: PULMONARY HYPERTENSION
     Dosage: TITRATION 0.5 - 1.0 - 2.0 MG
     Route: 048
     Dates: start: 20111213, end: 20111213
  23. LASIX [Suspect]
     Active Substance: FUROSEMIDE
     Indication: CARDIAC FAILURE
     Dosage: 20 MG, QD
     Route: 042
     Dates: start: 20111217, end: 20111217
  24. RIOCIGUAT (GUANYLATE CYCLASE STIMULATOR) [Suspect]
     Active Substance: RIOCIGUAT
     Indication: PULMONARY HYPERTENSION
     Dosage: TITRATION 0.5 - 1.0 - 2.0 MG
     Route: 048
     Dates: start: 20111014, end: 20111212
  25. ARTIST [Suspect]
     Active Substance: CARVEDILOL
     Indication: CARDIAC FAILURE
     Dosage: 2.5 MG, QD
     Route: 048
     Dates: start: 20090420, end: 20111215
  26. TANATRIL [Concomitant]
     Active Substance: IMIDAPRIL
     Indication: CARDIAC FAILURE
     Dosage: 1.25 MG, QD
     Route: 048
     Dates: start: 20050811, end: 20111215
  27. HARNAL [Concomitant]
     Active Substance: TAMSULOSIN HYDROCHLORIDE
     Indication: BENIGN PROSTATIC HYPERPLASIA
     Dosage: 0.2 MG, QD
     Route: 048
     Dates: start: 20090325
  28. EVIPROSTAT [Concomitant]
     Active Substance: CHIMAPHILA UMBELLATA\MANGANESE CHLORIDE\POPULUS TREMULOIDES\SODIUM TAUROCHOLATE
     Indication: BENIGN PROSTATIC HYPERPLASIA
     Dosage: 1 DF, TID
     Route: 048
     Dates: start: 2003
  29. ZYLORIC [Concomitant]
     Active Substance: ALLOPURINOL
     Indication: HYPERURICAEMIA
     Dosage: 100 MG, QD
     Route: 048
     Dates: start: 20090624, end: 20111215
  30. ZYLORIC [Concomitant]
     Active Substance: ALLOPURINOL
     Indication: HYPERURICAEMIA
     Dosage: 100 MG, QD
     Route: 048
     Dates: start: 20120105
  31. GLUCOSE [Concomitant]
     Active Substance: DEXTROSE
     Indication: CATHETERISATION CARDIAC
     Dosage: 500 ML, QD INTRAVENOUS DRIP
     Route: 042
     Dates: start: 20111213, end: 20111213
  32. RIOCIGUAT (GUANYLATE CYCLASE STIMULATOR) [Suspect]
     Active Substance: RIOCIGUAT
     Indication: PULMONARY HYPERTENSION
     Dosage: EXTENSION PHASE
     Route: 048
     Dates: start: 20111214, end: 20111215
  33. RIOCIGUAT (GUANYLATE CYCLASE STIMULATOR) [Suspect]
     Active Substance: RIOCIGUAT
     Indication: PULMONARY HYPERTENSION
     Dosage: TITRATION 0.5 - 1.0 - 2.0 MG
     Route: 048
     Dates: start: 20110916, end: 20111013
  34. LASIX [Suspect]
     Active Substance: FUROSEMIDE
     Indication: CARDIAC FAILURE
     Dosage: 40 MG, QD
     Route: 048
     Dates: start: 20111221
  35. PARIET [Concomitant]
     Active Substance: RABEPRAZOLE SODIUM
     Indication: DUODENAL ULCER
     Dosage: 10 MG, QD
     Route: 048
     Dates: start: 20090206
  36. MAGNESIUM OXIDE. [Concomitant]
     Active Substance: MAGNESIUM OXIDE
     Indication: CONSTIPATION
     Dosage: 0.5 G, TID
     Route: 048
     Dates: start: 20111014, end: 20111215
  37. LUPRAC [Suspect]
     Active Substance: TORSEMIDE
     Indication: CARDIAC FAILURE
     Dosage: 4 MG, QD
     Route: 048
     Dates: start: 20090916, end: 20111215
  38. TANATRIL [Concomitant]
     Active Substance: IMIDAPRIL
     Indication: CARDIAC FAILURE
     Dosage: 1.25 MG, QD
     Route: 048
     Dates: start: 20120105
  39. CLARITH [Concomitant]
     Active Substance: CLARITHROMYCIN
     Indication: NASOPHARYNGITIS
     Dosage: 400 MG, BID
     Route: 048
     Dates: start: 20111020, end: 20111025

REACTIONS (2)
  - Sinus node dysfunction [Recovered/Resolved]
  - Cardiogenic shock [Recovered/Resolved]

NARRATIVE: CASE EVENT DATE: 20111215
